FAERS Safety Report 11401038 (Version 2)
Quarter: 2015Q3

REPORT INFORMATION
  Report Type: Spontaneous
  Country: US (occurrence: US)
  Receive Date: 20150820
  Receipt Date: 20150930
  Transmission Date: 20151125
  Serious: Yes (Hospitalization)
  Sender: FDA-Public Use
  Company Number: US-SA-2015SA115678

PATIENT
  Sex: Female

DRUGS (2)
  1. LEMTRADA [Suspect]
     Active Substance: ALEMTUZUMAB
     Indication: MULTIPLE SCLEROSIS
     Route: 041
     Dates: start: 20150810, end: 20150811
  2. LEMTRADA [Suspect]
     Active Substance: ALEMTUZUMAB
     Indication: MULTIPLE SCLEROSIS
     Route: 041

REACTIONS (4)
  - Tachycardia [Unknown]
  - Shigella sepsis [Unknown]
  - Febrile neutropenia [Unknown]
  - Bradycardia [Recovered/Resolved]

NARRATIVE: CASE EVENT DATE: 201508
